FAERS Safety Report 7443866-3 (Version None)
Quarter: 2011Q2

REPORT INFORMATION
  Report Type: 
  Country: None (occurrence: None)
  Receive Date: 20110428
  Receipt Date: 20100409
  Transmission Date: 20111010
  Serious: No
  Sender: FDA-Public Use
  Company Number: US-BAYER-201020385NA

PATIENT
  Sex: Female

DRUGS (3)
  1. YAZ [Suspect]
     Indication: ENDOMETRIOSIS
  2. YAZ [Suspect]
     Indication: ANTIANDROGEN THERAPY
  3. YAZ [Suspect]
     Indication: POLYCYSTIC OVARIES
     Dosage: UNK
     Route: 048
     Dates: start: 20090601, end: 20100101

REACTIONS (1)
  - HEADACHE [None]
